FAERS Safety Report 18376616 (Version 1)
Quarter: 2020Q4

REPORT INFORMATION
  Report Type: Spontaneous
  Country: US (occurrence: US)
  Receive Date: 20201012
  Receipt Date: 20201012
  Transmission Date: 20210114
  Serious: Yes (Disabling)
  Sender: FDA-Public Use
  Company Number: None

PATIENT
  Age: 30 Year
  Sex: Male
  Weight: 99 kg

DRUGS (2)
  1. ESCITALOPRAM [Concomitant]
     Active Substance: ESCITALOPRAM OXALATE
  2. DEXTROAMPHET SACCHARAT, AMPHET ASPARTATE, DEXTROAMPHET SULFATE AND AMPHET SULFAT [Suspect]
     Active Substance: AMPHETAMINE ASPARTATE\AMPHETAMINE SULFATE\DEXTROAMPHETAMINE SACCHARATE\DEXTROAMPHETAMINE SULFATE
     Indication: ATTENTION DEFICIT HYPERACTIVITY DISORDER
     Dosage: ?          QUANTITY:30 CAPSULE(S);?
     Route: 048
     Dates: start: 20201007, end: 20201012

REACTIONS (16)
  - Diarrhoea [None]
  - Dizziness [None]
  - Weight decreased [None]
  - Insomnia [None]
  - Nausea [None]
  - Sleep terror [None]
  - Headache [None]
  - Decreased appetite [None]
  - Urinary tract infection [None]
  - Anxiety [None]
  - Product substitution issue [None]
  - Agitation [None]
  - Dry mouth [None]
  - Asthenia [None]
  - Nervousness [None]
  - Tachycardia [None]

NARRATIVE: CASE EVENT DATE: 20201012
